FAERS Safety Report 8433520-3 (Version None)
Quarter: 2012Q2

REPORT INFORMATION
  Report Type: 
  Country: None (occurrence: None)
  Receive Date: 20120613
  Receipt Date: 20120604
  Transmission Date: 20120825
  Serious: Yes (Other)
  Sender: FDA-Public Use
  Company Number: FR-ASTRAZENECA-2012SE38208

PATIENT
  Age: 637 Month
  Sex: Male

DRUGS (3)
  1. CRESTOR [Suspect]
     Indication: CARDIOVASCULAR EVENT PROPHYLAXIS
     Route: 048
     Dates: start: 20120401
  2. SECTRAL [Concomitant]
     Indication: CARDIOVASCULAR EVENT PROPHYLAXIS
     Route: 048
     Dates: start: 20120201
  3. CLOPIDOGREL BISULFATE AND ASPIRIN [Concomitant]
     Indication: CARDIOVASCULAR EVENT PROPHYLAXIS
     Dosage: DAILY
     Route: 048
     Dates: start: 20120201

REACTIONS (4)
  - MUSCULAR WEAKNESS [None]
  - PAIN IN EXTREMITY [None]
  - MYOCLONUS [None]
  - HYPOAESTHESIA [None]
